FAERS Safety Report 23012187 (Version 2)
Quarter: 2025Q3

REPORT INFORMATION
  Report Type: Spontaneous
  Country: AU (occurrence: AU)
  Receive Date: 20230930
  Receipt Date: 20250905
  Transmission Date: 20251020
  Serious: Yes (Hospitalization)
  Sender: ROCHE
  Company Number: None

PATIENT
  Age: 64 Year
  Sex: Female

DRUGS (7)
  1. MYCOPHENOLATE MOFETIL [Suspect]
     Active Substance: MYCOPHENOLATE MOFETIL
     Indication: Hypereosinophilic syndrome
     Route: 065
  2. MEPOLIZUMAB [Suspect]
     Active Substance: MEPOLIZUMAB
     Indication: Hypereosinophilic syndrome
     Route: 065
     Dates: start: 202201, end: 2022
  3. PREDNISOLONE [Suspect]
     Active Substance: PREDNISOLONE
     Indication: Hypereosinophilic syndrome
     Route: 065
     Dates: start: 2022
  4. PREDNISOLONE [Suspect]
     Active Substance: PREDNISOLONE
     Route: 065
     Dates: start: 2021, end: 2021
  5. PREDNISOLONE [Suspect]
     Active Substance: PREDNISOLONE
     Route: 065
     Dates: start: 2021, end: 2021
  6. PREDNISOLONE [Suspect]
     Active Substance: PREDNISOLONE
     Route: 065
     Dates: start: 2021
  7. IVERMECTIN [Concomitant]
     Active Substance: IVERMECTIN
     Route: 048

REACTIONS (5)
  - Off label use [Unknown]
  - Hookworm infection [Recovering/Resolving]
  - Nematodiasis [Recovering/Resolving]
  - Visceral larva migrans [Recovering/Resolving]
  - Central nervous system infection [Recovering/Resolving]
